FAERS Safety Report 8803051 (Version 2)
Quarter: 2013Q3

REPORT INFORMATION
  Report Type: Spontaneous
  Country: US (occurrence: US)
  Receive Date: 20120924
  Receipt Date: 20130827
  Transmission Date: 20140515
  Serious: Yes (Death, Other)
  Sender: FDA-Public Use
  Company Number: US-GENZYME-CERZ-1002633

PATIENT
  Sex: Female

DRUGS (1)
  1. CEREZYME [Suspect]
     Indication: GAUCHER^S DISEASE
     Dosage: UNK
     Route: 042
     Dates: end: 20120813

REACTIONS (6)
  - Abdominal abscess [Unknown]
  - Pneumonia aspiration [Fatal]
  - Sepsis [Fatal]
  - Metastases to liver [Fatal]
  - Chronic obstructive pulmonary disease [Fatal]
  - Sepsis [Fatal]
